FAERS Safety Report 12173297 (Version 1)
Quarter: 2016Q1

REPORT INFORMATION
  Report Type: Spontaneous
  Country: SE (occurrence: SE)
  Receive Date: 20160311
  Receipt Date: 20160311
  Transmission Date: 20160526
  Serious: Yes (Death)
  Sender: FDA-Public Use
  Company Number: SE-CELGENE-SWE-2016030005

PATIENT
  Age: 30 Year
  Sex: Male

DRUGS (8)
  1. THACAPZOL [Concomitant]
     Active Substance: METHIMAZOLE
     Indication: HYPERTHYROIDISM
     Route: 065
  2. SOLATOL [Concomitant]
     Indication: ATRIAL FIBRILLATION
     Route: 065
  3. LEVAXIN [Concomitant]
     Active Substance: LEVOTHYROXINE SODIUM
     Indication: HYPERTHYROIDISM
     Route: 065
  4. PREDNISOLONE. [Concomitant]
     Active Substance: PREDNISOLONE
     Indication: PYREXIA
     Route: 065
  5. VIDAZA [Suspect]
     Active Substance: AZACITIDINE
     Indication: MYELODYSPLASTIC SYNDROME
     Route: 058
     Dates: start: 20160111, end: 20160111
  6. XARELTO [Concomitant]
     Active Substance: RIVAROXABAN
     Indication: ATRIAL FIBRILLATION
     Route: 065
  7. VIDAZA [Suspect]
     Active Substance: AZACITIDINE
     Indication: JUVENILE CHRONIC MYELOMONOCYTIC LEUKAEMIA
     Route: 058
     Dates: start: 20160125, end: 20160125
  8. VIDAZA [Suspect]
     Active Substance: AZACITIDINE
     Route: 058
     Dates: start: 20151211, end: 20151211

REACTIONS (3)
  - Hepatic failure [Fatal]
  - Hypotension [Fatal]
  - Renal failure [Fatal]

NARRATIVE: CASE EVENT DATE: 20160125
